FAERS Safety Report 5001808-4 (Version None)
Quarter: 2006Q2

REPORT INFORMATION
  Report Type: 
  Country: None (occurrence: None)
  Receive Date: 20060515
  Receipt Date: 20060509
  Transmission Date: 20061013
  Serious: Yes (Hospitalization)
  Sender: FDA-Public Use
  Company Number: US-GLAXOSMITHKLINE-A0604855A

PATIENT
  Age: 67 Year
  Sex: Female

DRUGS (1)
  1. SEREVENT [Suspect]
     Indication: ASTHMA
     Dosage: 1PUFF UNKNOWN
     Route: 055
     Dates: start: 20060501

REACTIONS (1)
  - ANAEMIA HAEMOLYTIC AUTOIMMUNE [None]
